FAERS Safety Report 9160640 (Version 1)
Quarter: 2013Q1

REPORT INFORMATION
  Report Type: Spontaneous
  Country: US (occurrence: None)
  Receive Date: 20130215
  Receipt Date: 20130215
  Transmission Date: 20140127
  Serious: Yes (Life-Threatening, Hospitalization)
  Sender: FDA-Public Use
  Company Number: PHEN20130003

PATIENT
  Age: 70 Year
  Sex: Female

DRUGS (4)
  1. PHENTERMINE HCL [Suspect]
     Indication: OBESITY
     Route: 048
  2. METFORMIN HYDROCHLORIDE TABLETS (METFORMIN) (UNKNOWN) (METFORMIN) [Concomitant]
  3. OMEPRAZOLE (OMEPRAZOLE) (UNKNOWN) (OMEPRAZOLE) [Concomitant]
  4. CALCIUM PLUS VITAMIN D (COLECALCIFEROL, CALCIUM) (UNKNOWN) (COLECALCIFEROL, CALCIUM) [Concomitant]

REACTIONS (5)
  - Loss of consciousness [None]
  - Ventricular fibrillation [None]
  - Sinus bradycardia [None]
  - Arteriospasm coronary [None]
  - Mitral valve incompetence [None]
